FAERS Safety Report 8686603 (Version 4)
Quarter: 2012Q4

REPORT INFORMATION
  Report Type: 
  Country: GB (occurrence: GB)
  Receive Date: 20120726
  Receipt Date: 20120914
  Transmission Date: 20130627
  Serious: Yes (Hospitalization)
  Sender: FDA-Public Use
  Company Number: GB-009507513-1207GBR004584

PATIENT

DRUGS (14)
  1. DEXAMETHASONE [Suspect]
     Indication: METASTASES TO CENTRAL NERVOUS SYSTEM
     Dosage: 16 mg, qd
     Route: 048
     Dates: start: 20120620, end: 20120624
  2. DEXAMETHASONE [Suspect]
     Dosage: 12 mg, qd
     Route: 048
     Dates: start: 20120625, end: 20120626
  3. DEXAMETHASONE [Suspect]
     Dosage: 10 mg, qd
     Route: 048
     Dates: start: 20120627, end: 20120628
  4. DEXAMETHASONE [Suspect]
     Dosage: 8 mg, qd
     Route: 048
     Dates: start: 20120629, end: 20120630
  5. DEXAMETHASONE [Suspect]
     Dosage: 6 mg, qd
     Route: 048
     Dates: start: 20120701, end: 20120702
  6. DEXAMETHASONE [Suspect]
     Dosage: 3 mg, qd
     Route: 048
     Dates: start: 20120703
  7. ACETAMINOPHEN [Concomitant]
  8. ACIDEX (CALCIUM CARBONATE (+) SODIUM ALGINATE (+) SODIUM BICARBONATE) [Concomitant]
  9. ALLOPURINOL [Concomitant]
  10. AMLODIPINE [Concomitant]
  11. CYCLIZINE [Concomitant]
  12. METOCLOPRAMIDE [Concomitant]
  13. METOPROLOL [Concomitant]
  14. OMEPRAZOLE [Concomitant]

REACTIONS (3)
  - Substance-induced psychotic disorder [Recovering/Resolving]
  - Delusion [Recovering/Resolving]
  - Hallucination, visual [Recovering/Resolving]
